FAERS Safety Report 14325130 (Version 1)
Quarter: 2017Q4

REPORT INFORMATION
  Report Type: Spontaneous
  Country: US (occurrence: US)
  Receive Date: 20171223
  Receipt Date: 20171223
  Transmission Date: 20180321
  Serious: Yes (Disabling)
  Sender: FDA-Public Use
  Company Number: None

PATIENT
  Age: 43 Year
  Sex: Female
  Weight: 81 kg

DRUGS (3)
  1. KRILL OIL PROBIOTICS [Concomitant]
  2. DAILY MULTIVITAMIN [Concomitant]
     Active Substance: VITAMINS
  3. LEVOTHYROXINE. [Suspect]
     Active Substance: LEVOTHYROXINE
     Indication: HYPOTHYROIDISM
     Dosage: ?          QUANTITY:1 TABLET(S);?
     Route: 048
     Dates: start: 20171025, end: 20171215

REACTIONS (1)
  - Diplopia [None]

NARRATIVE: CASE EVENT DATE: 20171213
